FAERS Safety Report 5019658-1 (Version None)
Quarter: 2006Q2

REPORT INFORMATION
  Report Type: 
  Country: None (occurrence: None)
  Receive Date: 20060601
  Receipt Date: 20060522
  Transmission Date: 20061013
  Serious: Yes (Death)
  Sender: FDA-Public Use
  Company Number: 163-20785-06050751

PATIENT
  Age: 65 Year
  Sex: Female

DRUGS (2)
  1. THALOMID [Suspect]
     Indication: MULTIPLE MYELOMA
     Dosage: 100MG BID, ORAL
     Route: 048
     Dates: start: 20050502, end: 20060201
  2. DECADRON SRC [Concomitant]

REACTIONS (1)
  - RESPIRATORY FAILURE [None]
